FAERS Safety Report 15782488 (Version 4)
Quarter: 2019Q1

REPORT INFORMATION
  Report Type: Spontaneous
  Country: CA (occurrence: CA)
  Receive Date: 20190102
  Receipt Date: 20190322
  Transmission Date: 20190417
  Serious: Yes (Other)
  Sender: FDA-Public Use
  Company Number: CA-PFIZER INC-2018497220

PATIENT
  Age: 57 Year
  Sex: Female

DRUGS (3)
  1. XELJANZ [Suspect]
     Active Substance: TOFACITINIB CITRATE
     Dosage: 5 MG, 2X/DAY
     Route: 048
     Dates: start: 201812
  2. XELJANZ [Suspect]
     Active Substance: TOFACITINIB CITRATE
     Indication: RHEUMATOID ARTHRITIS
     Dosage: 5MG OD (1X/DAY)
     Route: 048
     Dates: start: 20181127, end: 201812
  3. SENOKOT [Concomitant]
     Active Substance: SENNOSIDES
     Indication: FUNCTIONAL GASTROINTESTINAL DISORDER
     Dosage: UNK

REACTIONS (5)
  - Drug effect incomplete [Unknown]
  - Intentional product misuse [Unknown]
  - Headache [Unknown]
  - Rib fracture [Not Recovered/Not Resolved]
  - Gastrooesophageal reflux disease [Unknown]

NARRATIVE: CASE EVENT DATE: 20181127
